FAERS Safety Report 4494307-X (Version None)
Quarter: 2004Q4

REPORT INFORMATION
  Report Type: 
  Country: None (occurrence: None)
  Receive Date: 20041105
  Receipt Date: 20040907
  Transmission Date: 20050328
  Serious: Yes (Hospitalization)
  Sender: FDA-Public Use
  Company Number: JP-GLAXOSMITHKLINE-B0344956A

PATIENT
  Sex: Female
  Weight: 45 kg

DRUGS (1)
  1. VALTREX [Suspect]
     Indication: HERPES ZOSTER
     Dosage: 1000MG PER DAY
     Route: 048
     Dates: start: 20040904, end: 20040907

REACTIONS (5)
  - DISORIENTATION [None]
  - DRUG LEVEL DECREASED [None]
  - DYSKINESIA [None]
  - ENCEPHALOPATHY [None]
  - PYREXIA [None]
